FAERS Safety Report 15843211 (Version 1)
Quarter: 2019Q1

REPORT INFORMATION
  Report Type: Spontaneous
  Country: IN (occurrence: IN)
  Receive Date: 20190118
  Receipt Date: 20190118
  Transmission Date: 20190417
  Serious: Yes (Death, Hospitalization, Other)
  Sender: FDA-Public Use
  Company Number: IN-PFIZER INC-2017279679

PATIENT
  Age: 61 Year
  Sex: Female

DRUGS (11)
  1. NERVUP /00324901/ [Concomitant]
  2. HEXIDINE MOUTHWASH [Concomitant]
     Dosage: UNK UNK, 4X/DAY
  3. ZOLEDRONIC ACID. [Concomitant]
     Active Substance: ZOLEDRONIC ACID
     Dosage: 4 MG, UNK
  4. LETROZOLE. [Concomitant]
     Active Substance: LETROZOLE
  5. CANDID /00212501/ [Concomitant]
     Dosage: UNK UNK, 4X/DAY
  6. PALBACE [Suspect]
     Active Substance: PALBOCICLIB
     Dosage: 100 MG, UNK
  7. NORMAL SALINE [Concomitant]
     Active Substance: SODIUM CHLORIDE
     Dosage: 500 ML, UNK
     Route: 042
  8. FASLODEX [Concomitant]
     Active Substance: FULVESTRANT
     Dosage: 250 MG, UNK
     Route: 030
  9. PAN D /03494601/ [Concomitant]
     Dosage: UNK, 1X/DAY
  10. FULVESTRANT. [Concomitant]
     Active Substance: FULVESTRANT
     Dosage: UNK
  11. PALBACE [Suspect]
     Active Substance: PALBOCICLIB
     Indication: BREAST CANCER METASTATIC
     Dosage: 75 MG, UNK
     Route: 048
     Dates: start: 20170625

REACTIONS (3)
  - Death [Fatal]
  - Ascites [Unknown]
  - Liver disorder [Unknown]

NARRATIVE: CASE EVENT DATE: 20190110
